FAERS Safety Report 9777704 (Version 2)
Quarter: 2015Q3

REPORT INFORMATION
  Report Type: Spontaneous
  Country: US (occurrence: US)
  Receive Date: 20131223
  Receipt Date: 20150921
  Transmission Date: 20151125
  Serious: Yes (Hospitalization)
  Sender: FDA-Public Use
  Company Number: US-ROCHE-1322470

PATIENT
  Age: 32 Year
  Sex: Female

DRUGS (1)
  1. XOLAIR [Suspect]
     Active Substance: OMALIZUMAB
     Indication: ASTHMA
     Dosage: MOST RECENT INJECTION WAS AROUND JULY OR THE FIRST OF AUGUST 2013
     Route: 058
     Dates: start: 2010

REACTIONS (6)
  - Dehydration [Unknown]
  - Depression [Unknown]
  - Eczema [Unknown]
  - Anxiety [Unknown]
  - Malnutrition [Unknown]
  - Sinusitis [Unknown]

NARRATIVE: CASE EVENT DATE: 201305
